FAERS Safety Report 20532236 (Version 1)
Quarter: 2022Q1

REPORT INFORMATION
  Report Type: Spontaneous
  Country: GB (occurrence: GB)
  Receive Date: 20220301
  Receipt Date: 20220301
  Transmission Date: 20220423
  Serious: Yes (Other)
  Sender: FDA-Public Use
  Company Number: GB-MYLANLABS-2022M1015380

PATIENT
  Age: 26 Year
  Sex: Female

DRUGS (1)
  1. GLATIRAMER ACETATE [Suspect]
     Active Substance: GLATIRAMER ACETATE
     Indication: Multiple sclerosis
     Dosage: UNK
     Route: 058
     Dates: start: 202110

REACTIONS (10)
  - Choking [Unknown]
  - Body temperature increased [Unknown]
  - Exposure during pregnancy [Recovered/Resolved]
  - Swelling [Unknown]
  - Dyspnoea [Unknown]
  - Cough [Unknown]
  - Hypoaesthesia [Unknown]
  - Illness [Unknown]
  - Dyspepsia [Unknown]
  - Abdominal discomfort [Unknown]
